FAERS Safety Report 26058913 (Version 1)
Quarter: 2025Q4

REPORT INFORMATION
  Report Type: Spontaneous
  Country: US (occurrence: US)
  Receive Date: 20251118
  Receipt Date: 20251118
  Transmission Date: 20260118
  Serious: No
  Sender: COLLEGIUM PHARMACEUTICAL
  Company Number: US-COLLEGIUM PHARMACEUTICAL, INC.-20250502170

PATIENT

DRUGS (2)
  1. BELBUCA [Suspect]
     Active Substance: BUPRENORPHINE HYDROCHLORIDE
     Indication: Pain
     Dosage: 150 MICROGRAM (TWO FILMS OF 150 MCG TO MAKE IT TO 300MCG, TAKEN TWICE A DAY)
     Route: 002
  2. BELBUCA [Suspect]
     Active Substance: BUPRENORPHINE HYDROCHLORIDE
     Dosage: 300 MICROGRAM, BID
     Route: 002

REACTIONS (5)
  - Drug ineffective [Unknown]
  - Incorrect route of product administration [Unknown]
  - Product communication issue [Unknown]
  - Product packaging difficult to open [Unknown]
  - Product adhesion issue [Unknown]
